FAERS Safety Report 7437480-3 (Version None)
Quarter: 2011Q2

REPORT INFORMATION
  Report Type: 
  Country: None (occurrence: None)
  Receive Date: 20110426
  Receipt Date: 20110414
  Transmission Date: 20111010
  Serious: Yes (Hospitalization, Other)
  Sender: FDA-Public Use
  Company Number: PHHY2011US31837

PATIENT
  Sex: Female
  Weight: 98 kg

DRUGS (8)
  1. FOLIC ACID [Concomitant]
  2. TYLENOL PM [Concomitant]
  3. EXJADE [Suspect]
     Indication: SICKLE CELL TRAIT
     Dosage: 1000 MG, QD
     Dates: start: 20070801
  4. ADVAIR DISKUS 100/50 [Concomitant]
  5. ZOLOFT [Concomitant]
  6. AMBIEN [Concomitant]
     Route: 048
  7. ALBUTEROL [Concomitant]
  8. PERCOCET [Concomitant]

REACTIONS (2)
  - SUBDURAL HAEMORRHAGE [None]
  - SICKLE CELL ANAEMIA WITH CRISIS [None]
